FAERS Safety Report 7051170-0 (Version None)
Quarter: 2010Q4

REPORT INFORMATION
  Report Type: 
  Country: None (occurrence: None)
  Receive Date: 20101019
  Receipt Date: 20101011
  Transmission Date: 20110411
  Serious: Yes (Other)
  Sender: FDA-Public Use
  Company Number: PT-B.I. PHARMACEUTICALS,INC./RIDGEFIELD-2010-DE-05680PO

PATIENT
  Sex: Male

DRUGS (9)
  1. ATROVENT [Suspect]
     Indication: RESPIRATORY TRACT INFECTION
     Dosage: STRENGTH: 0.25MG/2ML
     Dates: start: 20100901
  2. ALLOPURINOL [Suspect]
     Indication: RESPIRATORY TRACT INFECTION
     Route: 048
     Dates: start: 20100901
  3. CAPTOPRIL [Suspect]
     Indication: RESPIRATORY TRACT INFECTION
     Dates: start: 20100901
  4. COLCHICINE [Suspect]
     Indication: RESPIRATORY TRACT INFECTION
     Route: 048
     Dates: start: 20100901
  5. ENOXAPARIN SODIUM [Suspect]
     Indication: RESPIRATORY TRACT INFECTION
     Dosage: STRENGTH: 40MG/0.4ML
     Dates: start: 20100901
  6. IBUPROFEN [Suspect]
     Indication: RESPIRATORY TRACT INFECTION
     Route: 048
     Dates: start: 20100901
  7. LEVOFLOXACIN [Suspect]
     Indication: RESPIRATORY TRACT INFECTION
     Dates: start: 20100901
  8. OMEPRAZOLE [Suspect]
     Indication: RESPIRATORY TRACT INFECTION
     Route: 048
     Dates: start: 20100901
  9. PARACETAMOL [Suspect]
     Indication: RESPIRATORY TRACT INFECTION
     Dates: start: 20100901

REACTIONS (4)
  - ARTHRALGIA [None]
  - INFLAMMATION [None]
  - JOINT SWELLING [None]
  - OEDEMA PERIPHERAL [None]
